FAERS Safety Report 14861129 (Version 1)
Quarter: 2018Q2

REPORT INFORMATION
  Report Type: Spontaneous
  Country: IT (occurrence: IT)
  Receive Date: 20180508
  Receipt Date: 20180508
  Transmission Date: 20180711
  Serious: Yes (Other)
  Sender: FDA-Public Use
  Company Number: PHHY2018IT029739

PATIENT
  Age: 58 Year
  Sex: Female

DRUGS (5)
  1. CAPECITABINE. [Suspect]
     Active Substance: CAPECITABINE
     Indication: INVASIVE DUCTAL BREAST CARCINOMA
     Dosage: 1000 MG/M2 TWICE DAILY FROM DAY 1 TO DAY 14 EVERY 21 DAYS; LATER REDUCED BY 25%
     Route: 065
  2. VINORELBINE [Suspect]
     Active Substance: VINORELBINE\VINORELBINE TARTRATE
     Indication: INVASIVE DUCTAL BREAST CARCINOMA
     Dosage: 60 MG/M2
     Route: 048
  3. LETROZOLE. [Suspect]
     Active Substance: LETROZOLE
     Indication: INVASIVE DUCTAL BREAST CARCINOMA
     Dosage: UNK
     Route: 065
  4. CAPECITABINE. [Suspect]
     Active Substance: CAPECITABINE
     Dosage: DOSE WAS REDUCED BY 25% AND THEN CONTINUED.
     Route: 065
  5. DASATINIB. [Suspect]
     Active Substance: DASATINIB
     Indication: INVASIVE DUCTAL BREAST CARCINOMA
     Dosage: 100 MG, QD
     Route: 048

REACTIONS (3)
  - Drug intolerance [Unknown]
  - Neutropenia [Unknown]
  - Diarrhoea [Unknown]
